FAERS Safety Report 7336291-7 (Version None)
Quarter: 2011Q1

REPORT INFORMATION
  Report Type: 
  Country: None (occurrence: None)
  Receive Date: 20110307
  Receipt Date: 20110222
  Transmission Date: 20110831
  Serious: Yes (Hospitalization)
  Sender: FDA-Public Use
  Company Number: GB-JNJFOC-20110301726

PATIENT
  Age: 82 Year
  Sex: Female

DRUGS (8)
  1. IBUPROFEN [Suspect]
     Route: 048
  2. FELBINAC [Concomitant]
     Route: 061
  3. MOVIPREP [Concomitant]
  4. IRBESARTAN [Concomitant]
  5. CO-CODAMOL [Concomitant]
  6. METFORMIN [Concomitant]
  7. IBUPROFEN [Suspect]
     Indication: PAIN
     Route: 048
  8. SIMVASTATIN [Concomitant]

REACTIONS (2)
  - OVERDOSE [None]
  - DUODENAL ULCER [None]
